FAERS Safety Report 8608499-1 (Version None)
Quarter: 2012Q3

REPORT INFORMATION
  Report Type: 
  Country: None (occurrence: None)
  Receive Date: 20120821
  Receipt Date: 20120817
  Transmission Date: 20120928
  Serious: No
  Sender: FDA-Public Use
  Company Number: US-TEVA-354588USA

PATIENT
  Sex: Female
  Weight: 56.75 kg

DRUGS (9)
  1. ESTRATEST [Concomitant]
     Indication: HORMONE REPLACEMENT THERAPY
  2. AMPHETAMINES [Concomitant]
  3. ARTHROTEC [Concomitant]
  4. ELMIRON [Concomitant]
     Indication: BLADDER DISORDER
  5. PRISTIQ [Concomitant]
     Indication: DEPRESSION
  6. PROAIR HFA [Suspect]
     Indication: ASTHMA
     Dosage: 2 PUFFS PRN 1-2 DAILY
  7. LORATADINE [Concomitant]
     Indication: HYPERSENSITIVITY
  8. QNASL [Concomitant]
     Dosage: 80 MICROGRAM DAILY; 2 SPRAYS EACH NOSTRIL
  9. NYQUIL [Concomitant]
     Indication: NASOPHARYNGITIS

REACTIONS (1)
  - DRUG SCREEN POSITIVE [None]
